FAERS Safety Report 7894402-9 (Version None)
Quarter: 2011Q4

REPORT INFORMATION
  Report Type: 
  Country: None (occurrence: None)
  Receive Date: 20111104
  Receipt Date: 20111028
  Transmission Date: 20120403
  Serious: Yes (Death, Other)
  Sender: FDA-Public Use
  Company Number: US-AMGEN-USASP2011056194

PATIENT
  Sex: Female

DRUGS (1)
  1. ENBREL [Suspect]
     Indication: RHEUMATOID ARTHRITIS
     Dosage: UNK
     Dates: start: 20010401, end: 20060101

REACTIONS (4)
  - RESPIRATORY DISORDER [None]
  - RHEUMATOID ARTHRITIS [None]
  - MUSCLE ATROPHY [None]
  - COMA [None]
